FAERS Safety Report 14247547 (Version 1)
Quarter: 2017Q4

REPORT INFORMATION
  Report Type: Other
  Country: GB (occurrence: GB)
  Receive Date: 20171204
  Receipt Date: 20171204
  Transmission Date: 20180321
  Serious: Yes (Other)
  Sender: FDA-Public Use
  Company Number: GB-HIKMA PHARMACEUTICALS CO. LTD-2017GB016456

PATIENT

DRUGS (1)
  1. INFLIXIMAB [Suspect]
     Active Substance: INFLIXIMAB
     Indication: CROHN^S DISEASE
     Dosage: 240 MG, UNK
     Route: 051
     Dates: start: 20171027, end: 20171027

REACTIONS (4)
  - Hyperhidrosis [Recovered/Resolved]
  - Erythema [Recovered/Resolved]
  - Abdominal discomfort [Recovered/Resolved]
  - Chest discomfort [Recovered/Resolved]

NARRATIVE: CASE EVENT DATE: 20171027
